FAERS Safety Report 6172863-3 (Version None)
Quarter: 2009Q2

REPORT INFORMATION
  Report Type: 
  Country: None (occurrence: None)
  Receive Date: 20090430
  Receipt Date: 20090417
  Transmission Date: 20091009
  Serious: Yes (Hospitalization)
  Sender: FDA-Public Use
  Company Number: JP-ROCHE-597250

PATIENT
  Sex: Female
  Weight: 46 kg

DRUGS (22)
  1. KYTRIL [Suspect]
     Indication: PROPHYLAXIS OF NAUSEA AND VOMITING
     Route: 041
     Dates: start: 20080904
  2. AVASTIN [Suspect]
     Indication: COLON CANCER METASTATIC
     Route: 041
     Dates: start: 20080904, end: 20081001
  3. AVASTIN [Suspect]
     Route: 041
     Dates: start: 20081022, end: 20081022
  4. AVASTIN [Suspect]
     Route: 041
     Dates: start: 20081119
  5. ELPLAT [Suspect]
     Indication: COLON CANCER METASTATIC
     Route: 041
     Dates: start: 20080904, end: 20081001
  6. ELPLAT [Suspect]
     Route: 041
     Dates: start: 20081022, end: 20081022
  7. ELPLAT [Suspect]
     Route: 041
     Dates: start: 20081119
  8. FLUOROURACIL [Suspect]
     Indication: COLON CANCER METASTATIC
     Dosage: ROUTE: INTRAVENOUS BOLUS
     Route: 042
     Dates: start: 20080904, end: 20081001
  9. FLUOROURACIL [Suspect]
     Dosage: ROUTE: INTRAVENOUS DRIP
     Route: 042
     Dates: start: 20080904, end: 20081001
  10. FLUOROURACIL [Suspect]
     Dosage: ROUTE: INTRAVENOUS BOLUS
     Route: 042
     Dates: start: 20081022, end: 20081023
  11. FLUOROURACIL [Suspect]
     Dosage: ROUTE: INTRAVENOUS DRIP
     Route: 042
     Dates: start: 20081022
  12. FLUOROURACIL [Suspect]
     Dosage: ROUTE: INTRAVENOUS BOLUS
     Route: 042
     Dates: start: 20081119
  13. FLUOROURACIL [Suspect]
     Dosage: ROUTE: INTRAVENOUS DRIP
     Route: 042
     Dates: start: 20081119
  14. DEXART [Suspect]
     Indication: DRUG USE FOR UNKNOWN INDICATION
     Route: 041
     Dates: start: 20080904
  15. ISOVORIN [Suspect]
     Indication: COLON CANCER METASTATIC
     Route: 041
     Dates: start: 20080904
  16. CALCIUM LEVOFOLINATE [Suspect]
     Indication: COLON CANCER METASTATIC
     Route: 041
     Dates: start: 20081022, end: 20081023
  17. CALCIUM LEVOFOLINATE [Suspect]
     Route: 041
     Dates: start: 20081119
  18. BLOPRESS [Concomitant]
     Route: 048
  19. NORVASC [Concomitant]
     Route: 048
  20. TAGAMET [Concomitant]
     Route: 048
  21. MUCOSTA [Concomitant]
     Route: 048
  22. FERROUS SULFATE TAB [Concomitant]
     Dosage: NAME RPTD AS TETUCUR S
     Route: 048

REACTIONS (2)
  - BLOOD PRESSURE INCREASED [None]
  - CONVULSION [None]
